FAERS Safety Report 5918702-4 (Version None)
Quarter: 2008Q4

REPORT INFORMATION
  Report Type: 
  Country: None (occurrence: None)
  Receive Date: 20081015
  Receipt Date: 20080612
  Transmission Date: 20090506
  Serious: No
  Sender: FDA-Public Use
  Company Number: US-ASTRAZENECA-2008UW11835

PATIENT
  Age: 41 Year
  Sex: Female
  Weight: 88.9 kg

DRUGS (5)
  1. SYMBICORT [Suspect]
     Indication: ASTHMA
     Route: 055
  2. SYMBICORT [Suspect]
     Dosage: REDUCED TO 80/4.5
     Route: 055
  3. FUROSEMIDE [Concomitant]
  4. POTASSIUM CHLORIDE [Concomitant]
  5. NAPROXEN [Concomitant]

REACTIONS (1)
  - WEIGHT INCREASED [None]
